FAERS Safety Report 20932711 (Version 3)
Quarter: 2022Q4

REPORT INFORMATION
  Report Type: Spontaneous
  Country: US (occurrence: US)
  Receive Date: 20220608
  Receipt Date: 20221005
  Transmission Date: 20230113
  Serious: Yes (Other)
  Sender: FDA-Public Use
  Company Number: US-PFIZER INC-202200800693

PATIENT
  Age: 27 Year
  Sex: Male
  Weight: 70.31 kg

DRUGS (3)
  1. PRISTIQ EXTENDED-RELEASE [Suspect]
     Active Substance: DESVENLAFAXINE SUCCINATE
     Indication: Depression suicidal
     Dosage: 25 MG, 1X/DAY(FOR 7 DAYS)
     Dates: start: 20201119, end: 20201129
  2. PRISTIQ EXTENDED-RELEASE [Suspect]
     Active Substance: DESVENLAFAXINE SUCCINATE
     Indication: Depression
     Dosage: 50 MG, 1X/DAY(FOR 3 DAYS)
  3. PRISTIQ EXTENDED-RELEASE [Suspect]
     Active Substance: DESVENLAFAXINE SUCCINATE
     Dosage: 50 MG, 1X/DAY (ONCE A DAY IN THE MORNING)
     Dates: start: 20210301, end: 20210323

REACTIONS (16)
  - Deafness [Not Recovered/Not Resolved]
  - Malaise [Unknown]
  - Affective disorder [Unknown]
  - Male sexual dysfunction [Unknown]
  - Nightmare [Unknown]
  - Hyperhidrosis [Unknown]
  - Yawning [Unknown]
  - Feeling abnormal [Unknown]
  - Personality disorder [Unknown]
  - Drug ineffective [Unknown]
  - Depression [Not Recovered/Not Resolved]
  - Tinnitus [Not Recovered/Not Resolved]
  - Sleep disorder [Unknown]
  - Disturbance in attention [Unknown]
  - Anxiety [Unknown]
  - Affect lability [Unknown]
